FAERS Safety Report 8821537 (Version 1)
Quarter: 2012Q4

REPORT INFORMATION
  Report Type: 
  Country: US (occurrence: US)
  Receive Date: 20121002
  Receipt Date: 20121002
  Transmission Date: 20130627
  Serious: Yes (Disabling, Other)
  Sender: FDA-Public Use
  Company Number: US-PFIZER INC-2012243059

PATIENT
  Age: 57 Year
  Sex: Female
  Weight: 56.69 kg

DRUGS (1)
  1. EFFEXOR [Suspect]
     Indication: DEPRESSION
     Dosage: 225 mg, daily
     Route: 048

REACTIONS (5)
  - Suicidal ideation [Unknown]
  - Activities of daily living impaired [Unknown]
  - Dependence [Unknown]
  - Drug ineffective [Unknown]
  - Crying [Unknown]
